FAERS Safety Report 9220755 (Version 4)
Quarter: 2013Q3

REPORT INFORMATION
  Report Type: Report from Study
  Country: JP (occurrence: JP)
  Receive Date: 20130409
  Receipt Date: 20130725
  Transmission Date: 20140515
  Serious: Yes (Death, Hospitalization, Other)
  Sender: FDA-Public Use
  Company Number: JP-B.I. PHARMACEUTICALS,INC./RIDGEFIELD-2013-BI-09129GD

PATIENT
  Age: 77 Year
  Sex: Female
  Weight: 39 kg

DRUGS (3)
  1. PRADAXA [Suspect]
     Indication: ATRIAL FIBRILLATION
     Dosage: 220 MG
     Route: 048
     Dates: start: 20120418, end: 20120526
  2. LIDUC M [Concomitant]
     Indication: DYSLIPIDAEMIA
     Dosage: 10 MG
     Route: 065
     Dates: start: 201204
  3. GASTER [Concomitant]
     Dosage: 20 MG
     Route: 065
     Dates: start: 201204

REACTIONS (3)
  - Embolic stroke [Fatal]
  - Pneumonia [Unknown]
  - Drug effect incomplete [Unknown]
